FAERS Safety Report 19907109 (Version 1)
Quarter: 2021Q3

REPORT INFORMATION
  Report Type: Spontaneous
  Country: US (occurrence: US)
  Receive Date: 20210930
  Receipt Date: 20210930
  Transmission Date: 20211014
  Serious: Yes (Hospitalization)
  Sender: FDA-Public Use
  Company Number: None

PATIENT
  Age: 51 Year
  Sex: Female

DRUGS (1)
  1. SUNITINIB CAP 25MG [Suspect]
     Active Substance: SUNITINIB
     Dosage: ?          OTHER FREQUENCY:OTHER;?
     Route: 048
     Dates: start: 201911, end: 202107

REACTIONS (4)
  - Hepatic cancer [None]
  - Therapy interrupted [None]
  - Infection [None]
  - Unevaluable event [None]

NARRATIVE: CASE EVENT DATE: 20210723
